FAERS Safety Report 5841015-6 (Version None)
Quarter: 2008Q3

REPORT INFORMATION
  Report Type: 
  Country: None (occurrence: None)
  Receive Date: 20080811
  Receipt Date: 20080711
  Transmission Date: 20090109
  Serious: Yes (Other)
  Sender: FDA-Public Use
  Company Number: US-MERCK-0807USA02980B1

PATIENT
  Age: 0 Day

DRUGS (1)
  1. SINGULAIR [Suspect]
     Route: 064
     Dates: start: 20040301

REACTIONS (1)
  - ABORTION [None]
